FAERS Safety Report 6222272-3 (Version None)
Quarter: 2009Q2

REPORT INFORMATION
  Report Type: 
  Country: None (occurrence: None)
  Receive Date: 20090611
  Receipt Date: 20090603
  Transmission Date: 20091009
  Serious: Yes (Other)
  Sender: FDA-Public Use
  Company Number: US-PFIZER INC-2009222327

PATIENT

DRUGS (2)
  1. VIAGRA [Suspect]
  2. CIALIS [Suspect]

REACTIONS (1)
  - RETINAL VEIN THROMBOSIS [None]
